FAERS Safety Report 9058581 (Version 1)
Quarter: 2013Q1

REPORT INFORMATION
  Report Type: Spontaneous
  Country: IE (occurrence: IE)
  Receive Date: 20130211
  Receipt Date: 20130211
  Transmission Date: 20140127
  Serious: Yes (Other)
  Sender: FDA-Public Use
  Company Number: IE-MPIJNJ-2013-00989

PATIENT
  Sex: 0

DRUGS (1)
  1. VELCADE [Suspect]
     Indication: PLASMA CELL MYELOMA
     Route: 065

REACTIONS (1)
  - Guillain-Barre syndrome [Unknown]
